FAERS Safety Report 14102681 (Version 1)
Quarter: 2017Q4

REPORT INFORMATION
  Report Type: Spontaneous
  Country: FR (occurrence: FR)
  Receive Date: 20171018
  Receipt Date: 20171018
  Transmission Date: 20180321
  Serious: Yes (Hospitalization)
  Sender: FDA-Public Use
  Company Number: FR-BRISTOL-MYERS SQUIBB COMPANY-BMS-2017-092792

PATIENT
  Age: 24 Year
  Sex: Male

DRUGS (1)
  1. ABILIFY [Suspect]
     Active Substance: ARIPIPRAZOLE
     Indication: AUTOMATISM
     Dosage: 10 MG, QD
     Route: 048
     Dates: start: 20170419, end: 20170428

REACTIONS (6)
  - Product use in unapproved indication [Unknown]
  - Vomiting [Unknown]
  - Strabismus [Not Recovered/Not Resolved]
  - Nausea [Unknown]
  - Vertigo [Recovering/Resolving]
  - Diplopia [Not Recovered/Not Resolved]

NARRATIVE: CASE EVENT DATE: 20170424
